FAERS Safety Report 14126623 (Version 1)
Quarter: 2017Q4

REPORT INFORMATION
  Report Type: Spontaneous
  Country: US (occurrence: US)
  Receive Date: 20171025
  Receipt Date: 20171025
  Transmission Date: 20180321
  Serious: No
  Sender: FDA-Public Use
  Company Number: US-009507513-1710USA002542

PATIENT
  Age: 17 Year
  Sex: Female
  Weight: 123.81 kg

DRUGS (1)
  1. NEXPLANON [Suspect]
     Active Substance: ETONOGESTREL
     Indication: CONTRACEPTION
     Dosage: ONE ROD EVERY THREE YEARS
     Route: 059
     Dates: start: 20170208

REACTIONS (4)
  - Complication of device removal [Unknown]
  - Complication associated with device [Recovered/Resolved]
  - Migration of implanted drug [Unknown]
  - Menstruation irregular [Unknown]

NARRATIVE: CASE EVENT DATE: 2017
